FAERS Safety Report 8458581-7 (Version None)
Quarter: 2012Q2

REPORT INFORMATION
  Report Type: 
  Country: None (occurrence: None)
  Receive Date: 20120622
  Receipt Date: 20120613
  Transmission Date: 20120825
  Serious: Yes (Hospitalization)
  Sender: FDA-Public Use
  Company Number: US-JNJFOC-20120606782

PATIENT
  Age: 76 Year
  Sex: Male
  Weight: 63.32 kg

DRUGS (7)
  1. AXITINIB [Suspect]
     Indication: METASTATIC RENAL CELL CARCINOMA
     Dosage: POST LEAD-IN PERIOD
     Route: 048
     Dates: start: 20091117, end: 20120319
  2. LIPITOR [Concomitant]
     Indication: BLOOD CHOLESTEROL
     Route: 065
     Dates: start: 20070101, end: 20120313
  3. NAMENDA [Concomitant]
     Indication: DEMENTIA
     Route: 065
     Dates: start: 20101117
  4. ARICEPT [Concomitant]
     Indication: DEMENTIA
     Route: 065
     Dates: start: 20100501
  5. LEVAQUIN [Suspect]
     Indication: PRODUCT USED FOR UNKNOWN INDICATION
     Route: 065
     Dates: start: 20120302, end: 20120308
  6. COREG [Concomitant]
     Indication: HYPERTENSION
     Route: 065
     Dates: start: 20100601
  7. FLOMAX [Concomitant]
     Indication: BENIGN PROSTATIC HYPERPLASIA
     Route: 065
     Dates: start: 20060101

REACTIONS (6)
  - DIARRHOEA [None]
  - DECREASED APPETITE [None]
  - PYREXIA [None]
  - HYPONATRAEMIA [None]
  - PNEUMONIA [None]
  - ENCEPHALOPATHY [None]
